FAERS Safety Report 13017807 (Version 1)
Quarter: 2016Q4

REPORT INFORMATION
  Report Type: Spontaneous
  Country: ZA (occurrence: ZA)
  Receive Date: 20161212
  Receipt Date: 20161212
  Transmission Date: 20170207
  Serious: Yes (Other)
  Sender: FDA-Public Use
  Company Number: ZA-GLAXOSMITHKLINE-ZA2016GSK168229

PATIENT
  Age: 9 Year
  Sex: Male
  Weight: 39 kg

DRUGS (5)
  1. EPILIM [Suspect]
     Active Substance: VALPROATE SODIUM
     Indication: SEIZURE
     Dosage: UNK,500MG M, 400MG N
  2. KEPPRA [Suspect]
     Active Substance: LEVETIRACETAM
     Indication: PRODUCT USED FOR UNKNOWN INDICATION
     Dosage: UNK,750M, 1000N
  3. LAMICTIN [Suspect]
     Active Substance: LAMOTRIGINE
     Indication: SEIZURE
     Dosage: 25 MG, UNK
     Route: 048
  4. LAMICTIN [Suspect]
     Active Substance: LAMOTRIGINE
     Dosage: 100 MG, BID
     Route: 048
  5. LAMICTIN [Suspect]
     Active Substance: LAMOTRIGINE
     Dosage: 50 UNK, UNK
     Route: 048

REACTIONS (3)
  - Change in seizure presentation [Unknown]
  - Abdominal pain upper [Unknown]
  - Seizure [Unknown]

NARRATIVE: CASE EVENT DATE: 20160527
